FAERS Safety Report 15650006 (Version 3)
Quarter: 2022Q1

REPORT INFORMATION
  Report Type: Spontaneous
  Country: JP (occurrence: JP)
  Receive Date: 20181123
  Receipt Date: 20220318
  Transmission Date: 20220423
  Serious: Yes (Other)
  Sender: FDA-Public Use
  Company Number: JP-002147023-PHJP2018JP019702

PATIENT
  Age: 84 Year
  Sex: Male

DRUGS (5)
  1. LUCENTIS [Suspect]
     Active Substance: RANIBIZUMAB
     Indication: Choroidal neovascularisation
     Route: 031
     Dates: start: 20140408
  2. LUCENTIS [Suspect]
     Active Substance: RANIBIZUMAB
     Indication: Age-related macular degeneration
  3. VISUDYNE [Suspect]
     Active Substance: VERTEPORFIN
     Indication: Choroidal neovascularisation
     Route: 042
     Dates: start: 20130305
  4. VISUDYNE [Suspect]
     Active Substance: VERTEPORFIN
     Indication: Age-related macular degeneration
  5. EYLEA [Concomitant]
     Active Substance: AFLIBERCEPT
     Indication: Product used for unknown indication
     Dosage: 0.05 ML, UNK
     Route: 031
     Dates: start: 20130305

REACTIONS (2)
  - Visual acuity reduced [Recovering/Resolving]
  - Tachyphylaxis [Recovered/Resolved]

NARRATIVE: CASE EVENT DATE: 20150408
